FAERS Safety Report 5756256-6 (Version None)
Quarter: 2008Q2

REPORT INFORMATION
  Report Type: 
  Country: None (occurrence: None)
  Receive Date: 20080602
  Receipt Date: 20080521
  Transmission Date: 20081010
  Serious: Yes (Other)
  Sender: FDA-Public Use
  Company Number: US-PFIZER INC-2008044495

PATIENT
  Sex: Female
  Weight: 64.9 kg

DRUGS (1)
  1. CHANTIX [Suspect]
     Indication: SMOKING CESSATION THERAPY
     Dates: start: 20070501, end: 20070701

REACTIONS (21)
  - AGITATION [None]
  - ANOREXIA [None]
  - ANXIETY [None]
  - CANDIDIASIS [None]
  - CONSTIPATION [None]
  - DYSGEUSIA [None]
  - FLATULENCE [None]
  - HEADACHE [None]
  - IMPAIRED DRIVING ABILITY [None]
  - INSOMNIA [None]
  - ORAL INTAKE REDUCED [None]
  - OROPHARYNGEAL BLISTERING [None]
  - PARANOIA [None]
  - SOCIAL FEAR [None]
  - STOMACH DISCOMFORT [None]
  - SWOLLEN TONGUE [None]
  - TONGUE BLACK HAIRY [None]
  - TONGUE NEOPLASM [None]
  - UNEVALUABLE EVENT [None]
  - VOMITING [None]
  - WEIGHT DECREASED [None]
